FAERS Safety Report 11077934 (Version 1)
Quarter: 2015Q2

REPORT INFORMATION
  Report Type: Spontaneous
  Country: US (occurrence: None)
  Receive Date: 20150429
  Receipt Date: 20150429
  Transmission Date: 20150821
  Serious: Yes (Death, Hospitalization)
  Sender: FDA-Public Use
  Company Number: None

PATIENT
  Age: 23 Year
  Sex: Female
  Weight: 95.2 kg

DRUGS (2)
  1. CYTARABINE. [Suspect]
     Active Substance: CYTARABINE
     Indication: CHEMOTHERAPY
     Dates: end: 20070612
  2. L-ASPARAGINASE [Suspect]
     Active Substance: ASPARAGINASE
     Dates: end: 20070606

REACTIONS (12)
  - Pancytopenia [None]
  - Cardiac arrest [None]
  - General physical health deterioration [None]
  - Tachypnoea [None]
  - Pain [None]
  - Acidosis [None]
  - Tachycardia [None]
  - Cellulitis [None]
  - Septic shock [None]
  - Bacterial sepsis [None]
  - Acute kidney injury [None]
  - Apnoea [None]

NARRATIVE: CASE EVENT DATE: 20070621
